FAERS Safety Report 22917949 (Version 7)
Quarter: 2024Q1

REPORT INFORMATION
  Report Type: Other
  Country: US (occurrence: US)
  Receive Date: 20230907
  Receipt Date: 20240126
  Transmission Date: 20240409
  Serious: Yes (Hospitalization, Other)
  Sender: FDA-Public Use
  Company Number: US-TRAVERE-2023TVT00224

PATIENT
  Age: 79 Year
  Sex: Female

DRUGS (13)
  1. FILSPARI [Suspect]
     Active Substance: SPARSENTAN
     Indication: Chronic kidney disease
     Dosage: 200 MG RE-021 ONCE DAILY FOR FIRST 14 DAYS.
     Route: 048
  2. FILSPARI [Suspect]
     Active Substance: SPARSENTAN
     Indication: Proteinuria
     Route: 048
     Dates: start: 202306
  3. FILSPARI [Suspect]
     Active Substance: SPARSENTAN
     Indication: IgA nephropathy
     Route: 048
     Dates: start: 20230621, end: 20231114
  4. LOKELMA [Concomitant]
     Active Substance: SODIUM ZIRCONIUM CYCLOSILICATE
     Dosage: LOKELMA 10G POWDER PACK
  5. LATANOPROST [Concomitant]
     Active Substance: LATANOPROST
     Dosage: LATANOPROST 0.005% DROPS
  6. MECLIZINE HYDROCHLORIDE [Concomitant]
     Active Substance: MECLIZINE HYDROCHLORIDE
  7. LOSARTAN POTASSIUM [Concomitant]
     Active Substance: LOSARTAN POTASSIUM
  8. VITAMIN D NOS [Concomitant]
     Active Substance: VITAMIN D NOS
     Dosage: VITAMIN D-400
  9. PEPCID [Concomitant]
     Active Substance: FAMOTIDINE
  10. ZYRTEC-D [Concomitant]
     Active Substance: CETIRIZINE HYDROCHLORIDE\PSEUDOEPHEDRINE HYDROCHLORIDE
     Dosage: ZYRTEC-D 5MG-120MG TAB.SR 12H
  11. ROSUVASTATIN CALCIUM [Concomitant]
     Active Substance: ROSUVASTATIN CALCIUM
  12. TUMS [Concomitant]
     Active Substance: CALCIUM CARBONATE
  13. METOPROLOL SUCCINATE [Concomitant]
     Active Substance: METOPROLOL SUCCINATE

REACTIONS (12)
  - Acute kidney injury [Unknown]
  - Feeling abnormal [Unknown]
  - Hepatic enzyme increased [None]
  - Diarrhoea [Recovered/Resolved]
  - Nausea [Recovered/Resolved]
  - Dyspepsia [Recovered/Resolved]
  - Dysgeusia [Recovered/Resolved]
  - Blood pressure decreased [Recovering/Resolving]
  - Arthritis [Unknown]
  - Glomerular filtration rate decreased [Unknown]
  - Endodontic procedure [Unknown]
  - Blood creatinine increased [Unknown]
